FAERS Safety Report 12463010 (Version 1)
Quarter: 2016Q2

REPORT INFORMATION
  Report Type: Spontaneous
  Country: US (occurrence: US)
  Receive Date: 20160614
  Receipt Date: 20160614
  Transmission Date: 20160815
  Serious: No
  Sender: FDA-Public Use
  Company Number: US-JNJFOC-20160425339

PATIENT
  Sex: Female

DRUGS (4)
  1. DOXIL [Suspect]
     Active Substance: DOXORUBICIN HYDROCHLORIDE
     Indication: BREAST CANCER RECURRENT
     Route: 042
     Dates: start: 201509
  2. DOXIL [Suspect]
     Active Substance: DOXORUBICIN HYDROCHLORIDE
     Indication: BREAST CANCER RECURRENT
     Route: 042
     Dates: start: 201511
  3. DOXIL [Suspect]
     Active Substance: DOXORUBICIN HYDROCHLORIDE
     Indication: BREAST CANCER RECURRENT
     Route: 042
     Dates: start: 201510
  4. PACLITAXEL W/CARBOPLATIN [Suspect]
     Active Substance: CARBOPLATIN\PACLITAXEL
     Indication: BREAST CANCER
     Route: 042

REACTIONS (1)
  - Drug ineffective [Not Recovered/Not Resolved]
